FAERS Safety Report 5183842-7 (Version None)
Quarter: 2006Q4

REPORT INFORMATION
  Report Type: 
  Country: None (occurrence: None)
  Receive Date: 20061220
  Receipt Date: 20061214
  Transmission Date: 20070319
  Serious: Yes (Hospitalization)
  Sender: FDA-Public Use
  Company Number: FR-GLAXOSMITHKLINE-B0450545A

PATIENT
  Age: 77 Year
  Sex: Male
  Weight: 100 kg

DRUGS (8)
  1. ARIXTRA [Suspect]
     Indication: THROMBOSIS PROPHYLAXIS
     Dosage: 2.5MG PER DAY
     Route: 058
     Dates: start: 20061211, end: 20061213
  2. GLUCOPHAGE [Concomitant]
  3. COLCHIMAX [Concomitant]
  4. OMEPRAZOLE [Concomitant]
  5. KETOPROFEN [Concomitant]
  6. TOPALGIC ( FRANCE ) [Concomitant]
  7. MORPHINE [Concomitant]
  8. PERFALGAN [Concomitant]

REACTIONS (3)
  - DEEP VEIN THROMBOSIS [None]
  - DRUG INEFFECTIVE [None]
  - OEDEMA PERIPHERAL [None]
